FAERS Safety Report 5326547-1 (Version None)
Quarter: 2007Q2

REPORT INFORMATION
  Report Type: 
  Country: None (occurrence: None)
  Receive Date: 20070516
  Receipt Date: 20070510
  Transmission Date: 20071010
  Serious: Yes (Hospitalization)
  Sender: FDA-Public Use
  Company Number: FR-BRISTOL-MYERS SQUIBB COMPANY-13732250

PATIENT
  Age: 81 Year
  Sex: Female

DRUGS (4)
  1. ERBITUX [Suspect]
     Indication: COLORECTAL CANCER
     Route: 042
     Dates: start: 20061201, end: 20070301
  2. CAMPTOSAR [Concomitant]
     Indication: COLORECTAL CANCER
     Route: 042
  3. METHYLPREDNISOLONE SODIUM SUCCINATE [Concomitant]
  4. ZOFRAN [Concomitant]

REACTIONS (2)
  - DYSPNOEA [None]
  - LUNG DISORDER [None]
